FAERS Safety Report 8583411-2 (Version None)
Quarter: 2012Q3

REPORT INFORMATION
  Report Type: 
  Country: None (occurrence: None)
  Receive Date: 20120809
  Receipt Date: 20120802
  Transmission Date: 20120928
  Serious: Yes (Other)
  Sender: FDA-Public Use
  Company Number: CHPA2012US016957

PATIENT
  Age: 64 Year
  Sex: Female

DRUGS (10)
  1. FLEXERIL [Concomitant]
  2. NUVIGIL [Concomitant]
  3. MORPHINE [Concomitant]
  4. VOLTAREN [Suspect]
     Indication: OSTEOARTHRITIS
     Dosage: 4 G, BID PRN
     Route: 061
     Dates: start: 20080101, end: 20120801
  5. OXYCODONE HCL [Concomitant]
  6. TOPROL-XL [Concomitant]
  7. INSULIN [Concomitant]
  8. LASIX [Concomitant]
  9. SYNTHROID [Concomitant]
  10. MEDROL [Concomitant]

REACTIONS (4)
  - UNDERDOSE [None]
  - THROMBOSIS [None]
  - FLUID RETENTION [None]
  - PAIN [None]
